FAERS Safety Report 7415211-0 (Version None)
Quarter: 2011Q2

REPORT INFORMATION
  Report Type: 
  Country: None (occurrence: None)
  Receive Date: 20110414
  Receipt Date: 20110408
  Transmission Date: 20111010
  Serious: Yes (Death, Hospitalization)
  Sender: FDA-Public Use
  Company Number: PHHY2011DE16400

PATIENT
  Sex: Female
  Weight: 65 kg

DRUGS (12)
  1. ZOMETA [Suspect]
     Indication: BONE DISORDER
     Dosage: 4 MG, EVERY 4 WEEKS
     Route: 042
     Dates: start: 20101208, end: 20110105
  2. SIMVASTATIN [Concomitant]
     Indication: HYPERCHOLESTEROLAEMIA
     Dosage: 20 MG, DAILY
     Route: 048
  3. DELIX [Concomitant]
     Indication: HYPERTENSION
     Dosage: 10 MG, DAILY
     Route: 048
  4. HYDROCHLOROTHIAZIDE [Concomitant]
     Indication: HYPERTENSION
     Dosage: 12.5 MG, DAILY
     Route: 048
  5. IMMUNOSUPPRESSANTS [Concomitant]
  6. BELOC ZOK [Concomitant]
     Indication: HYPERTENSION
     Dosage: 95 MG, DAILY
     Route: 048
  7. NEXIUM [Concomitant]
     Dosage: 10 MG, DAILY
     Route: 048
  8. MORPHINE [Concomitant]
     Dosage: 10 MG, BID
     Route: 058
  9. FASLODEX [Concomitant]
     Indication: BREAST CANCER
     Dosage: 500 MG, EVERY 4 WEEKS
     Route: 030
     Dates: start: 20100915
  10. ASPIRIN [Concomitant]
     Indication: FACIAL NERVE DISORDER
     Dosage: 100 MG, DAILY
     Route: 048
     Dates: start: 20080101
  11. DURAGESIC-100 [Concomitant]
     Dosage: 12 UG/HR, UNK
     Route: 062
  12. SEVREDOL [Concomitant]
     Dosage: 10 MG, DAILY

REACTIONS (8)
  - GENERAL PHYSICAL HEALTH DETERIORATION [None]
  - ORGAN FAILURE [None]
  - RENAL FAILURE [None]
  - OEDEMA [None]
  - HEPATORENAL SYNDROME [None]
  - JAUNDICE [None]
  - PLEURAL EFFUSION [None]
  - ASCITES [None]
